FAERS Safety Report 10649991 (Version 1)
Quarter: 2014Q4

REPORT INFORMATION
  Report Type: Spontaneous
  Country: US (occurrence: None)
  Receive Date: 20141205
  Receipt Date: 20141205
  Transmission Date: 20150529
  Serious: Yes (Disabling)
  Sender: FDA-Public Use
  Company Number: 163-POMAL-14014273

PATIENT
  Age: 73 Year
  Sex: Female
  Weight: 57.6 kg

DRUGS (10)
  1. ACARBOSE. [Concomitant]
     Active Substance: ACARBOSE
  2. FENOFIBRATE. [Concomitant]
     Active Substance: FENOFIBRATE
  3. HYDROCODONE/ACETAMINOPHEN (REMEDEINE) [Concomitant]
  4. GLYBURIDE (GLIBENCLAMIDE) [Concomitant]
     Active Substance: GLYBURIDE
  5. LUNESTA [Concomitant]
     Active Substance: ESZOPICLONE
  6. POMALYST [Suspect]
     Active Substance: POMALIDOMIDE
     Indication: PLASMA CELL MYELOMA
     Route: 048
     Dates: start: 201401, end: 20140130
  7. ESTRADIOL. [Concomitant]
     Active Substance: ESTRADIOL
  8. ASPIRIN. [Concomitant]
     Active Substance: ASPIRIN
  9. VYTORIN (INEGY) [Concomitant]
  10. LYRICA [Concomitant]
     Active Substance: PREGABALIN

REACTIONS (2)
  - Dyspnoea [None]
  - Diarrhoea [None]
